FAERS Safety Report 7843095-5 (Version None)
Quarter: 2011Q4

REPORT INFORMATION
  Report Type: 
  Country: None (occurrence: None)
  Receive Date: 20111025
  Receipt Date: 20111019
  Transmission Date: 20120403
  Serious: No
  Sender: FDA-Public Use
  Company Number: US-PFIZER INC-2011209036

PATIENT
  Sex: Female
  Weight: 109 kg

DRUGS (11)
  1. TRICOR [Concomitant]
     Dosage: 145 MG, 1X/DAY
  2. METFORMIN [Concomitant]
     Dosage: 500 MG, 4X/DAY
  3. PRAVACHOL [Concomitant]
     Dosage: 40 MG, 1X/DAY
  4. PREVACID [Concomitant]
     Indication: GASTROOESOPHAGEAL REFLUX DISEASE
     Dosage: 30 MG, 1X/DAY
  5. NITROGLYCERIN [Concomitant]
     Dosage: 9 MG, 2X/DAY
  6. GLIPIZIDE [Concomitant]
     Dosage: 20 MG, UNK
  7. NITROSTAT [Suspect]
     Indication: CHEST PAIN
     Dosage: 0.4 MG, AS NEEDED
     Route: 060
  8. AMLODIPINE BESILATE / OLMESARTAN MEDOXOMIL [Concomitant]
     Dosage: 5/40 MG, UNK
  9. LISINOPRIL [Concomitant]
     Dosage: UNK, 2X/DAY
  10. ASPIRIN [Concomitant]
     Dosage: 81 MG, 1X/DAY
  11. TOPROL-XL [Concomitant]
     Dosage: 100 MG, 1X/DAY

REACTIONS (4)
  - DRUG INEFFECTIVE [None]
  - LABORATORY TEST ABNORMAL [None]
  - CHEST PAIN [None]
  - PRODUCT SOLUBILITY ABNORMAL [None]
